FAERS Safety Report 17988663 (Version 5)
Quarter: 2020Q4

REPORT INFORMATION
  Report Type: Spontaneous
  Country: US (occurrence: US)
  Receive Date: 20200707
  Receipt Date: 20201119
  Transmission Date: 20210113
  Serious: No
  Sender: FDA-Public Use
  Company Number: US-PFIZER INC-2020259218

PATIENT
  Age: 68 Year
  Sex: Female
  Weight: 72.57 kg

DRUGS (2)
  1. CELEBREX [Suspect]
     Active Substance: CELECOXIB
     Indication: RHEUMATOID ARTHRITIS
     Dosage: UNK, DAILY (1-2 CAPSULE)
     Route: 048
     Dates: end: 2016
  2. CELEBREX [Suspect]
     Active Substance: CELECOXIB
     Indication: OSTEOARTHRITIS
     Dosage: 200 MG (ONCE OR TWICE A DAY)
     Dates: end: 201708

REACTIONS (3)
  - Tremor [Not Recovered/Not Resolved]
  - Condition aggravated [Unknown]
  - Body height decreased [Unknown]
